FAERS Safety Report 15764745 (Version 1)
Quarter: 2018Q4

REPORT INFORMATION
  Report Type: Spontaneous
  Country: GB (occurrence: GB)
  Receive Date: 20181227
  Receipt Date: 20181227
  Transmission Date: 20190205
  Serious: Yes (Disabling)
  Sender: FDA-Public Use
  Company Number: GB-ABBVIE-18S-167-2604403-00

PATIENT
  Age: 48 Year
  Sex: Male

DRUGS (1)
  1. CLARITHROMYCIN. [Suspect]
     Active Substance: CLARITHROMYCIN
     Indication: PRODUCT USED FOR UNKNOWN INDICATION
     Dosage: UNK UNK, Q3D (TAKE FOR 3 DAYS)
     Route: 048
     Dates: start: 20180605, end: 20180608

REACTIONS (4)
  - Disinhibition [Recovering/Resolving]
  - Dissociation [Recovering/Resolving]
  - Psychotic disorder [Recovering/Resolving]
  - Confusional state [Recovering/Resolving]

NARRATIVE: CASE EVENT DATE: 20180607
